FAERS Safety Report 6236107-6 (Version None)
Quarter: 2009Q2

REPORT INFORMATION
  Report Type: 
  Country: None (occurrence: None)
  Receive Date: 20090619
  Receipt Date: 20090612
  Transmission Date: 20091009
  Serious: Yes (Death, Hospitalization)
  Sender: FDA-Public Use
  Company Number: US-BAYER-200922930NA

PATIENT
  Sex: Male

DRUGS (1)
  1. NEXAVAR [Suspect]
     Indication: RENAL CANCER
     Route: 048
     Dates: start: 20080701, end: 20090218

REACTIONS (3)
  - ASTHENIA [None]
  - PULMONARY OEDEMA [None]
  - RENAL CANCER [None]
